FAERS Safety Report 9191484 (Version 4)
Quarter: 2013Q4

REPORT INFORMATION
  Report Type: Spontaneous
  Country: US (occurrence: US)
  Receive Date: 20130326
  Receipt Date: 20131018
  Transmission Date: 20140711
  Serious: No
  Sender: FDA-Public Use
  Company Number: US-ASTRAZENECA-2013SE17056

PATIENT
  Age: 73 Year
  Sex: Female
  Weight: 58.5 kg

DRUGS (5)
  1. PULMICORT FLEXHALER [Suspect]
     Indication: ASTHMA
     Dosage: 2 PUFFS IN AM AND 1 OR 2 PUFFS IN EVENING
     Route: 055
     Dates: end: 201303
  2. PULMICORT FLEXHALER [Suspect]
     Indication: ASTHMA
     Route: 055
  3. ALBUTEROL [Suspect]
     Route: 065
  4. VIT D [Concomitant]
  5. CHLORASEPTIC LOZENGES [Concomitant]

REACTIONS (7)
  - Chest pain [Recovering/Resolving]
  - Balance disorder [Recovering/Resolving]
  - Discomfort [Recovering/Resolving]
  - Dysgeusia [Recovering/Resolving]
  - Dizziness [Recovering/Resolving]
  - Asthenia [Recovering/Resolving]
  - Off label use [Unknown]
